FAERS Safety Report 11488254 (Version 1)
Quarter: 2015Q3

REPORT INFORMATION
  Report Type: Spontaneous
  Country: US (occurrence: US)
  Receive Date: 20150910
  Receipt Date: 20150910
  Transmission Date: 20151125
  Serious: No
  Sender: FDA-Public Use
  Company Number: US-ROCHE-1412079

PATIENT
  Sex: Female

DRUGS (7)
  1. PEGASYS [Suspect]
     Active Substance: PEGINTERFERON ALFA-2A
     Route: 058
  2. SOVALDI [Suspect]
     Active Substance: SOFOSBUVIR
     Indication: CHRONIC HEPATITIS C
     Route: 048
     Dates: start: 20140504
  3. PEGASYS [Suspect]
     Active Substance: PEGINTERFERON ALFA-2A
     Route: 058
  4. RIBAVIRIN. [Suspect]
     Active Substance: RIBAVIRIN
     Indication: CHRONIC HEPATITIS C
     Dosage: TWO DIVIDED DOSES, NON-ROCHE DRUG MFG BY ZYDUS.
     Route: 048
     Dates: start: 20140504
  5. RIBAVIRIN. [Suspect]
     Active Substance: RIBAVIRIN
     Dosage: DIVIDED DOSES 400/600
     Route: 048
  6. PEGASYS [Suspect]
     Active Substance: PEGINTERFERON ALFA-2A
     Indication: CHRONIC HEPATITIS C
     Route: 058
     Dates: start: 20140504
  7. RIBAVIRIN. [Suspect]
     Active Substance: RIBAVIRIN
     Dosage: DIVIDED DOSES 200/400
     Route: 048

REACTIONS (9)
  - Fatigue [Unknown]
  - Anaemia [Unknown]
  - Insomnia [Unknown]
  - Hordeolum [Unknown]
  - Weight increased [Unknown]
  - Conjunctivitis [Unknown]
  - Platelet count decreased [Unknown]
  - Asthenia [Unknown]
  - Alopecia [Unknown]
